FAERS Safety Report 4990911-0 (Version None)
Quarter: 2006Q2

REPORT INFORMATION
  Report Type: 
  Country: None (occurrence: None)
  Receive Date: 20060428
  Receipt Date: 20060413
  Transmission Date: 20061013
  Serious: Yes (Hospitalization)
  Sender: FDA-Public Use
  Company Number: 2006-BP-04264RO

PATIENT
  Age: 14 Year
  Sex: Male

DRUGS (5)
  1. METHOTREXATE [Suspect]
     Indication: HODGKIN'S DISEASE
  2. PREDNISONE TAB [Suspect]
     Indication: HODGKIN'S DISEASE
  3. VINBLASTINE SULFATE [Suspect]
     Indication: HODGKIN'S DISEASE
  4. DOXORUBICIN (DOXORUBICIN) [Suspect]
     Indication: HODGKIN'S DISEASE
  5. ITRACONAZOLE [Suspect]
     Indication: HISTOPLASMOSIS
     Dosage: 200 MG TID FOR 5 DAYS; THEN 200 MG BID FOR PLANNED 4 WEEKS

REACTIONS (22)
  - ABDOMINAL PAIN [None]
  - BACK PAIN [None]
  - BONE MARROW TOXICITY [None]
  - C-REACTIVE PROTEIN INCREASED [None]
  - CHILLS [None]
  - COUGH [None]
  - DRUG TOXICITY [None]
  - EATING DISORDER [None]
  - FEBRILE NEUTROPENIA [None]
  - HAEMOGLOBIN DECREASED [None]
  - HAEMORRHAGE [None]
  - HISTOPLASMOSIS [None]
  - INFLUENZA [None]
  - LUNG DISORDER [None]
  - LYMPHADENOPATHY [None]
  - MALAISE [None]
  - MUCOSAL INFLAMMATION [None]
  - NEURALGIA [None]
  - PARAESTHESIA [None]
  - PULMONARY CALCIFICATION [None]
  - RED BLOOD CELL SEDIMENTATION RATE INCREASED [None]
  - SPLENIC LESION [None]
